FAERS Safety Report 9697906 (Version 1)
Quarter: 2013Q4

REPORT INFORMATION
  Report Type: Spontaneous
  Country: US (occurrence: US)
  Receive Date: 20131120
  Receipt Date: 20131120
  Transmission Date: 20140711
  Serious: Yes (Hospitalization)
  Sender: FDA-Public Use
  Company Number: US-ROCHE-1304047

PATIENT
  Sex: Male
  Weight: 74.91 kg

DRUGS (9)
  1. VALIUM [Suspect]
     Indication: DETOXIFICATION
     Route: 048
     Dates: start: 20131018
  2. ATIVAN [Concomitant]
     Indication: DETOXIFICATION
     Route: 042
     Dates: start: 20131018
  3. ATIVAN [Concomitant]
     Route: 042
     Dates: start: 201310
  4. ATIVAN [Concomitant]
     Route: 048
  5. ATIVAN [Concomitant]
     Route: 042
     Dates: start: 201310
  6. ENALAPRIL [Concomitant]
     Route: 065
     Dates: start: 2001
  7. AMBIEN [Concomitant]
     Route: 065
  8. LIBRIUM [Concomitant]
     Indication: DETOXIFICATION
     Route: 042
     Dates: start: 20131018
  9. SEROQUEL [Concomitant]
     Indication: DETOXIFICATION
     Route: 042
     Dates: start: 20131018, end: 201310

REACTIONS (4)
  - Asthenia [Unknown]
  - Ear pain [Unknown]
  - Hallucination [Unknown]
  - Off label use [Unknown]
